FAERS Safety Report 16918234 (Version 1)
Quarter: 2019Q4

REPORT INFORMATION
  Report Type: Spontaneous
  Country: US (occurrence: US)
  Receive Date: 20191015
  Receipt Date: 20191015
  Transmission Date: 20200122
  Serious: No
  Sender: FDA-Public Use
  Company Number: US-MYLANLABS-2019M1091804

PATIENT
  Sex: Male

DRUGS (1)
  1. CHLOROTHIAZIDE TABLETS, USP [Suspect]
     Active Substance: CHLOROTHIAZIDE
     Indication: BLOOD CALCIUM ABNORMAL
     Dosage: 125 MILLIGRAM, BID
     Dates: start: 20190812

REACTIONS (3)
  - Wrong technique in product usage process [Unknown]
  - Product colour issue [Unknown]
  - Off label use [Unknown]

NARRATIVE: CASE EVENT DATE: 2019
